FAERS Safety Report 14037793 (Version 1)
Quarter: 2017Q4

REPORT INFORMATION
  Report Type: Spontaneous
  Country: US (occurrence: None)
  Receive Date: 20171003
  Receipt Date: 20171003
  Transmission Date: 20180321
  Serious: Yes (Other)
  Sender: FDA-Public Use
  Company Number: None

PATIENT
  Age: 77 Year
  Sex: Female

DRUGS (1)
  1. REVLIMID [Suspect]
     Active Substance: LENALIDOMIDE
     Indication: PLASMA CELL MYELOMA
     Route: 048
     Dates: start: 20170911

REACTIONS (7)
  - Condition aggravated [None]
  - Joint injury [None]
  - Hypokalaemia [None]
  - Hypocalcaemia [None]
  - Asthenia [None]
  - Hypomagnesaemia [None]
  - Diarrhoea [None]

NARRATIVE: CASE EVENT DATE: 20170927
